FAERS Safety Report 7031724-8 (Version None)
Quarter: 2010Q4

REPORT INFORMATION
  Report Type: 
  Country: None (occurrence: None)
  Receive Date: 20101007
  Receipt Date: 20100928
  Transmission Date: 20110411
  Serious: Yes (Hospitalization)
  Sender: FDA-Public Use
  Company Number: US-BIOGENIDEC-2010BI033590

PATIENT
  Age: 58 Year
  Sex: Female
  Weight: 94 kg

DRUGS (2)
  1. AVONEX [Suspect]
     Indication: MULTIPLE SCLEROSIS
     Route: 030
     Dates: start: 20011101
  2. AVONEX [Suspect]
     Route: 030

REACTIONS (5)
  - ARTHRITIS [None]
  - DEEP VEIN THROMBOSIS [None]
  - DELAYED RECOVERY FROM ANAESTHESIA [None]
  - MEMORY IMPAIRMENT [None]
  - PROCEDURAL PAIN [None]
